FAERS Safety Report 5737607-5 (Version None)
Quarter: 2008Q2

REPORT INFORMATION
  Report Type: 
  Country: None (occurrence: None)
  Receive Date: 20080514
  Receipt Date: 20080502
  Transmission Date: 20081010
  Serious: Yes (Hospitalization)
  Sender: FDA-Public Use
  Company Number: AU-GENENTECH-260799

PATIENT
  Sex: Male

DRUGS (5)
  1. MABTHERA [Suspect]
     Indication: DRUG USE FOR UNKNOWN INDICATION
     Dosage: 750 MG, QD
     Route: 042
     Dates: start: 20070822
  2. ETOPOSIDE [Suspect]
     Indication: DRUG USE FOR UNKNOWN INDICATION
     Dosage: 100 MG, UNKNOWN
     Route: 042
     Dates: start: 20070822, end: 20071207
  3. IFOSFAMIDE [Suspect]
     Indication: DRUG USE FOR UNKNOWN INDICATION
     Dosage: 5 G, QD
     Route: 042
     Dates: start: 20070822, end: 20071207
  4. MESNA [Concomitant]
     Indication: DRUG USE FOR UNKNOWN INDICATION
  5. NEULASTA [Concomitant]
     Indication: DRUG USE FOR UNKNOWN INDICATION
     Dates: start: 20071208

REACTIONS (1)
  - FEBRILE NEUTROPENIA [None]
